FAERS Safety Report 4709142-4 (Version None)
Quarter: 2005Q3

REPORT INFORMATION
  Report Type: 
  Country: None (occurrence: None)
  Receive Date: 20050708
  Receipt Date: 20050629
  Transmission Date: 20060218
  Serious: Yes (Other)
  Sender: FDA-Public Use
  Company Number: PHBS2005JP09535

PATIENT
  Age: 56 Year
  Sex: Male

DRUGS (4)
  1. SIMULECT [Suspect]
     Indication: RENAL TRANSPLANT
  2. PROGRAF [Concomitant]
     Indication: RENAL TRANSPLANT
     Route: 065
  3. CELLCEPT [Concomitant]
     Indication: RENAL TRANSPLANT
     Route: 065
  4. METHYLPREDNISOLONE 16MG TAB [Concomitant]
     Indication: RENAL TRANSPLANT
     Route: 065

REACTIONS (1)
  - HAEMOLYTIC URAEMIC SYNDROME [None]
